FAERS Safety Report 25992659 (Version 1)
Quarter: 2025Q4

REPORT INFORMATION
  Report Type: Spontaneous
  Country: US (occurrence: US)
  Receive Date: 20251103
  Receipt Date: 20251103
  Transmission Date: 20260117
  Serious: No
  Sender: GALPHARM INTERNATIONAL
  Company Number: US-PERRIGO-25US010068

PATIENT

DRUGS (1)
  1. DOXYLAMINE SUCCINATE [Suspect]
     Active Substance: DOXYLAMINE SUCCINATE
     Indication: Insomnia
     Dosage: ONE-FOURTH TO ONE-THIRD TABLET, PRN
     Route: 048

REACTIONS (3)
  - Therapeutic product effect increased [Unknown]
  - Underdose [Unknown]
  - Wrong technique in product usage process [Unknown]
